FAERS Safety Report 6081380-0 (Version None)
Quarter: 2009Q1

REPORT INFORMATION
  Report Type: 
  Country: None (occurrence: None)
  Receive Date: 20090213
  Receipt Date: 20090129
  Transmission Date: 20090719
  Serious: Yes (Disabling)
  Sender: FDA-Public Use
  Company Number: 8042757

PATIENT
  Age: 64 Year
  Sex: Male

DRUGS (10)
  1. KEPPRA [Suspect]
     Indication: GRAND MAL CONVULSION
     Dosage: 500 MG 2/D PO
     Route: 048
     Dates: start: 20071107, end: 20081120
  2. KEPPRA [Suspect]
     Indication: GRAND MAL CONVULSION
     Dosage: 500 MG /D PO
     Route: 048
     Dates: start: 20081121, end: 20081128
  3. LAMICTAL [Concomitant]
  4. NOVONORM [Concomitant]
  5. CREON [Concomitant]
  6. LIPANTHYL [Concomitant]
  7. COTAREG [Concomitant]
  8. TEMERIT [Concomitant]
  9. ALLOPURINOL [Concomitant]
  10. INSULINE [Concomitant]

REACTIONS (4)
  - ECZEMA [None]
  - EPILEPSY [None]
  - PRURITUS [None]
  - THERAPEUTIC RESPONSE DECREASED [None]
